FAERS Safety Report 23397844 (Version 2)
Quarter: 2024Q1

REPORT INFORMATION
  Report Type: Report from Study
  Country: US (occurrence: US)
  Receive Date: 20240112
  Receipt Date: 20240318
  Transmission Date: 20240410
  Serious: Yes (Other)
  Sender: FDA-Public Use
  Company Number: US-002147023-NVSC2024US006632

PATIENT
  Age: 45 Year
  Sex: Female

DRUGS (2)
  1. KESIMPTA [Suspect]
     Active Substance: OFATUMUMAB
     Indication: Product used for unknown indication
     Dosage: UNK UNK, QMO
     Route: 065
     Dates: start: 20220606
  2. ADDERALL [Concomitant]
     Active Substance: AMPHETAMINE ASPARTATE\AMPHETAMINE SULFATE\DEXTROAMPHETAMINE SACCHARATE\DEXTROAMPHETAMINE SULFATE
     Indication: Product used for unknown indication
     Dosage: UNK
     Route: 065

REACTIONS (14)
  - Mental impairment [Unknown]
  - Fatigue [Unknown]
  - Brain fog [Unknown]
  - Alopecia [Unknown]
  - Blood immunoglobulin A decreased [Unknown]
  - Thirst [Unknown]
  - Gastrointestinal disorder [Unknown]
  - Memory impairment [Unknown]
  - Sleep talking [Unknown]
  - Panic reaction [Unknown]
  - Anxiety [Unknown]
  - Visual impairment [Unknown]
  - Migraine [Unknown]
  - Sensory overload [Unknown]

NARRATIVE: CASE EVENT DATE: 20240110
